FAERS Safety Report 4478603-8 (Version None)
Quarter: 2004Q4

REPORT INFORMATION
  Report Type: 
  Country: None (occurrence: None)
  Receive Date: 20041019
  Receipt Date: 20041012
  Transmission Date: 20050328
  Serious: Yes (Life-Threatening, Hospitalization)
  Sender: FDA-Public Use
  Company Number: US-MERCK-0410USA01893

PATIENT
  Age: 40 Year
  Sex: Female

DRUGS (3)
  1. VIOXX [Suspect]
     Indication: ARTHRITIS
     Route: 048
     Dates: start: 20020101, end: 20040930
  2. FOSAMAX [Concomitant]
     Route: 065
  3. VICODIN [Concomitant]
     Route: 065

REACTIONS (8)
  - ANOREXIA [None]
  - ASTHENIA [None]
  - CARDIAC DISORDER [None]
  - COMA [None]
  - DEHYDRATION [None]
  - FATIGUE [None]
  - INTESTINAL OBSTRUCTION [None]
  - PAIN [None]
